FAERS Safety Report 8190832-9 (Version None)
Quarter: 2012Q1

REPORT INFORMATION
  Report Type: 
  Country: None (occurrence: None)
  Receive Date: 20120307
  Receipt Date: 20120227
  Transmission Date: 20120608
  Serious: Yes (Hospitalization)
  Sender: FDA-Public Use
  Company Number: US-ALEXION-A201200135

PATIENT
  Sex: Female

DRUGS (3)
  1. SOLIRIS [Suspect]
     Indication: PAROXYSMAL NOCTURNAL HAEMOGLOBINURIA
     Dosage: UNK
     Route: 042
  2. PREDNISONE TAB [Concomitant]
     Dosage: 5 MG, UNK
  3. PREDNISONE TAB [Concomitant]
     Dosage: 10 MG, UNK

REACTIONS (4)
  - PRURITUS [None]
  - JOINT SWELLING [None]
  - NAUSEA [None]
  - DYSPNOEA [None]
